FAERS Safety Report 4393291-7 (Version None)
Quarter: 2004Q3

REPORT INFORMATION
  Report Type: 
  Country: None (occurrence: None)
  Receive Date: 20040701
  Receipt Date: 20040611
  Transmission Date: 20050211
  Serious: Yes (Hospitalization)
  Sender: FDA-Public Use
  Company Number: US_0406103632

PATIENT
  Sex: Female
  Weight: 3 kg

DRUGS (6)
  1. VINCRISTINE SULFATE [Suspect]
  2. DOXORUBICIN HCL [Concomitant]
  3. PREDNISONE [Concomitant]
  4. MERCAPTOPURINE [Concomitant]
  5. METHOTREXATE [Concomitant]
  6. CYCLOPHOSPHAMIDE [Concomitant]

REACTIONS (3)
  - DRUG EXPOSURE DURING PREGNANCY [None]
  - NEONATAL DISORDER [None]
  - PANCYTOPENIA [None]
